FAERS Safety Report 5992147-3 (Version None)
Quarter: 2008Q4

REPORT INFORMATION
  Report Type: 
  Country: None (occurrence: None)
  Receive Date: 20081202
  Receipt Date: 20071026
  Transmission Date: 20090506
  Serious: Yes (Other)
  Sender: FDA-Public Use
  Company Number: WAES 0706USA02109

PATIENT
  Age: 73 Year
  Sex: Female

DRUGS (4)
  1. FOSAMAX [Suspect]
     Indication: OSTEOPOROSIS
     Dosage: 70 MG/WKY/PO
     Route: 048
     Dates: start: 20060514, end: 20060809
  2. CITRACAL CAPLETS + D [Concomitant]
  3. ATENOLOL [Concomitant]
  4. LISINOPRIL [Concomitant]

REACTIONS (8)
  - ARTHRALGIA [None]
  - BACK PAIN [None]
  - DENTAL CARIES [None]
  - DYSPEPSIA [None]
  - ELECTROCARDIOGRAM T WAVE INVERSION [None]
  - HYPERTENSION [None]
  - OSTEONECROSIS [None]
  - PAIN IN JAW [None]
